FAERS Safety Report 6655715-1 (Version None)
Quarter: 2010Q1

REPORT INFORMATION
  Report Type: 
  Country: None (occurrence: None)
  Receive Date: 20100326
  Receipt Date: 20100326
  Transmission Date: 20100710
  Serious: Yes (Other)
  Sender: FDA-Public Use
  Company Number: None

PATIENT
  Age: 77 Year
  Sex: Female
  Weight: 72.5755 kg

DRUGS (1)
  1. COZAAR [Suspect]
     Indication: HYPERTENSION
     Dosage: 1 TAB DAILY ORAL
     Route: 048
     Dates: start: 20100205

REACTIONS (4)
  - BACK PAIN [None]
  - GAIT DISTURBANCE [None]
  - INSOMNIA [None]
  - RESPIRATORY DISORDER [None]
